FAERS Safety Report 8397762-8 (Version None)
Quarter: 2012Q2

REPORT INFORMATION
  Report Type: 
  Country: None (occurrence: None)
  Receive Date: 20120531
  Receipt Date: 20120529
  Transmission Date: 20120825
  Serious: Yes (Death)
  Sender: FDA-Public Use
  Company Number: US-BAYER-2011-103564

PATIENT
  Age: 66 Year
  Sex: Female

DRUGS (8)
  1. VITAMIN D [Concomitant]
  2. NEXAVAR [Suspect]
     Indication: HEPATIC NEOPLASM MALIGNANT
     Dosage: 400 MG, QD
     Route: 048
     Dates: start: 20110930
  3. FUROSEMIDE [Concomitant]
  4. MULTI-VITAMIN [Concomitant]
  5. NADOLOL [Concomitant]
  6. SPIRONOLACTONE [Concomitant]
  7. PRILOSEC [Concomitant]
  8. VITAMIN B COMPLEX CAP [Concomitant]

REACTIONS (4)
  - FATIGUE [None]
  - DEATH [None]
  - VOMITING [None]
  - DIARRHOEA [None]
